FAERS Safety Report 8024261-5 (Version None)
Quarter: 2012Q1

REPORT INFORMATION
  Report Type: 
  Country: None (occurrence: None)
  Receive Date: 20120105
  Receipt Date: 20111222
  Transmission Date: 20120608
  Serious: Yes (Other)
  Sender: FDA-Public Use
  Company Number: PHHY2009CA28497

PATIENT
  Sex: Female

DRUGS (9)
  1. EXJADE [Suspect]
     Dosage: 2000 MG, QD
     Route: 048
  2. CELEXA [Concomitant]
     Route: 065
  3. EXJADE [Suspect]
     Indication: MYELODYSPLASTIC SYNDROME
     Dosage: 2000 MG, UNK
     Route: 048
     Dates: start: 20080201
  4. EXJADE [Suspect]
     Indication: IRON OVERLOAD
     Dosage: 2000 MG, QD
     Route: 048
     Dates: start: 20090716
  5. VITAMIN B-12 [Concomitant]
     Dosage: 1000 MG, UNK
  6. EXJADE [Suspect]
     Dosage: 2500 MG, QD
     Route: 048
     Dates: start: 20090616
  7. MACROLID [Concomitant]
     Route: 065
  8. DITROPAN [Concomitant]
     Indication: CYSTITIS
     Dosage: 10 MG, BID
     Route: 048
  9. PHENOBARBITAL TAB [Concomitant]
     Indication: BRAIN NEOPLASM
     Dosage: 120 MG, BID
     Route: 048

REACTIONS (13)
  - WEIGHT DECREASED [None]
  - LOWER RESPIRATORY TRACT INFLAMMATION [None]
  - PAIN OF SKIN [None]
  - DRUG INTOLERANCE [None]
  - URINARY TRACT INFECTION [None]
  - BLOOD IRON INCREASED [None]
  - CYSTITIS [None]
  - INFLUENZA [None]
  - NASOPHARYNGITIS [None]
  - CONSTIPATION [None]
  - BACTERIAL INFECTION [None]
  - DIARRHOEA [None]
  - DRUG INEFFECTIVE [None]
